FAERS Safety Report 7468951-1 (Version None)
Quarter: 2011Q2

REPORT INFORMATION
  Report Type: 
  Country: None (occurrence: None)
  Receive Date: 20110429
  Receipt Date: 20110419
  Transmission Date: 20111010
  Serious: Yes (Hospitalization)
  Sender: FDA-Public Use
  Company Number: B0715612A

PATIENT
  Age: 80 Year
  Sex: Female

DRUGS (1)
  1. VALACICLOVIR [Suspect]
     Indication: HERPES ZOSTER
     Dosage: 1000 MF/ THREE TIMES PER DAY / ORAL
     Route: 048

REACTIONS (11)
  - ANAEMIA [None]
  - RESPIRATORY DISTRESS [None]
  - TOXICITY TO VARIOUS AGENTS [None]
  - RENAL FAILURE ACUTE [None]
  - HYPERCALCAEMIA [None]
  - CONSTIPATION [None]
  - THROMBOCYTOPENIA [None]
  - ABDOMINAL PAIN [None]
  - MENTAL STATUS CHANGES [None]
  - HEPATIC FUNCTION ABNORMAL [None]
  - INCORRECT DOSE ADMINISTERED [None]
